FAERS Safety Report 10399100 (Version 1)
Quarter: 2014Q3

REPORT INFORMATION
  Report Type: Spontaneous
  Country: US (occurrence: None)
  Receive Date: 20140818
  Receipt Date: 20140818
  Transmission Date: 20150326
  Serious: No
  Sender: FDA-Public Use
  Company Number: None

PATIENT
  Age: 47 Year
  Sex: Male
  Weight: 79.38 kg

DRUGS (1)
  1. ALAVERT ALLERGY [Suspect]
     Active Substance: LORATADINE
     Indication: SEASONAL ALLERGY
     Dates: start: 20140728, end: 20140813

REACTIONS (4)
  - Dysphagia [None]
  - Glossodynia [None]
  - Eating disorder [None]
  - Speech disorder [None]

NARRATIVE: CASE EVENT DATE: 20140807
